APPROVED DRUG PRODUCT: NAPROXEN
Active Ingredient: NAPROXEN
Strength: 500MG
Dosage Form/Route: TABLET, DELAYED RELEASE;ORAL
Application: A075390 | Product #002 | TE Code: AB
Applicant: AUROBINDO PHARMA USA INC
Approved: Apr 19, 2001 | RLD: No | RS: No | Type: RX